FAERS Safety Report 7900284-9 (Version None)
Quarter: 2011Q4

REPORT INFORMATION
  Report Type: 
  Country: None (occurrence: None)
  Receive Date: 20111104
  Receipt Date: 20111021
  Transmission Date: 20120403
  Serious: Yes (Life-Threatening, Hospitalization)
  Sender: FDA-Public Use
  Company Number: 1000025095

PATIENT
  Age: 5 Hour
  Sex: Male
  Weight: 3.69 kg

DRUGS (1)
  1. CITALOPRAM HYDROBROMIDE [Suspect]
     Dosage: 40 MG (40 MG, 1 IN 1 D), TRANSMAMMARY
     Route: 063

REACTIONS (5)
  - CYANOSIS NEONATAL [None]
  - EXPOSURE DURING BREAST FEEDING [None]
  - MATERNAL DRUGS AFFECTING FOETUS [None]
  - APGAR SCORE LOW [None]
  - SOMNAMBULISM [None]
